FAERS Safety Report 23057310 (Version 4)
Quarter: 2024Q3

REPORT INFORMATION
  Report Type: Spontaneous
  Country: US (occurrence: US)
  Receive Date: 20231012
  Receipt Date: 20240808
  Transmission Date: 20241017
  Serious: No
  Sender: AMGEN
  Company Number: US-AMGEN-USASP2023180219

PATIENT
  Age: 66 Year
  Sex: Male

DRUGS (4)
  1. TAVNEOS [Suspect]
     Active Substance: AVACOPAN
     Indication: Anti-neutrophil cytoplasmic antibody positive vasculitis
     Dosage: 30 MILLIGRAM, BID (TAKE 3 CAPSULES (30 MG) BY MOUTH TWICE DAILY WITH BREAKFAST AND DINNER (FOR VASCU
     Route: 048
     Dates: start: 20230918
  2. TAVNEOS [Suspect]
     Active Substance: AVACOPAN
     Dosage: 30 MILLIGRAM, BID (TAKE 3 CAPSULES (30 MG) BY MOUTH TWICE DAILY WITH BREAKFAST AND DINNER (FOR VASCU
     Route: 048
  3. TAVNEOS [Suspect]
     Active Substance: AVACOPAN
     Dosage: 30 MILLIGRAM, BID
     Route: 048
  4. TAVNEOS [Suspect]
     Active Substance: AVACOPAN
     Dosage: 10 MILLIGRAM, BID (WOULD RATHER TAKE 1 CAP TWICE A DAY)
     Route: 048

REACTIONS (6)
  - Cough [Unknown]
  - Pain [Unknown]
  - Fatigue [Unknown]
  - Product dose omission issue [Unknown]
  - Off label use [Unknown]
  - Product size issue [Unknown]

NARRATIVE: CASE EVENT DATE: 20230101
